FAERS Safety Report 21365726 (Version 1)
Quarter: 2022Q3

REPORT INFORMATION
  Report Type: Spontaneous
  Country: QA (occurrence: QA)
  Receive Date: 20220922
  Receipt Date: 20220922
  Transmission Date: 20221027
  Serious: Yes (Hospitalization, Other)
  Sender: FDA-Public Use
  Company Number: QA-Accord-278817

PATIENT
  Age: 71 Year
  Sex: Male

DRUGS (1)
  1. MYCOPHENOLATE MOFETIL [Suspect]
     Active Substance: MYCOPHENOLATE MOFETIL
     Indication: IgA nephropathy
     Dosage: MEDICATION FOR MORE THAN FOUR YEARS.

REACTIONS (3)
  - Haemorrhage intracranial [Recovered/Resolved]
  - Listeriosis [Recovered/Resolved]
  - Bacteraemia [Recovered/Resolved]
